FAERS Safety Report 10946298 (Version 2)
Quarter: 2015Q3

REPORT INFORMATION
  Report Type: Spontaneous
  Country: FR (occurrence: FR)
  Receive Date: 20150323
  Receipt Date: 20150921
  Transmission Date: 20151125
  Serious: Yes (Life-Threatening, Hospitalization, Other)
  Sender: FDA-Public Use
  Company Number: FR-GLAXOSMITHKLINE-FR2015GSK036486

PATIENT
  Age: 29 Year
  Sex: Female

DRUGS (3)
  1. RHINOFLUIMUCIL [Suspect]
     Active Substance: ACETYLCYSTEINE\BENZALKONIUM CHLORIDE\TUAMINOHEPTANE SULFATE
     Indication: ASTHMA
     Dosage: UNK
     Route: 045
     Dates: start: 20100617, end: 20100622
  2. MONONAXY [Suspect]
     Active Substance: CLARITHROMYCIN
     Indication: ASTHMA
     Dosage: 500 MG, BID
     Route: 048
     Dates: start: 20101017, end: 20101022
  3. SERETIDE [Suspect]
     Active Substance: FLUTICASONE FUROATE\SALMETEROL XINAFOATE
     Indication: ASTHMA
     Dosage: 2 PUFF(S), TID
     Route: 055
     Dates: start: 20100617, end: 20100622

REACTIONS (8)
  - Myasthenic syndrome [Recovered/Resolved]
  - Dysarthria [Recovered/Resolved]
  - Dysphagia [Recovered/Resolved]
  - Asthenia [Recovered/Resolved]
  - Dyspnoea at rest [Recovered/Resolved]
  - Condition aggravated [Recovered/Resolved]
  - Thymoma [Recovered/Resolved]
  - Eyelid ptosis [Recovered/Resolved]

NARRATIVE: CASE EVENT DATE: 201006
